FAERS Safety Report 8577305-6 (Version None)
Quarter: 2012Q3

REPORT INFORMATION
  Report Type: 
  Country: None (occurrence: None)
  Receive Date: 20120807
  Receipt Date: 20120713
  Transmission Date: 20120928
  Serious: No
  Sender: FDA-Public Use
  Company Number: US-ASTRAZENECA-2012SE48599

PATIENT
  Age: 60 Year
  Sex: Female
  Weight: 52.2 kg

DRUGS (2)
  1. ZOMIG [Suspect]
     Dosage: 5 MG, TWO TO FOUR TIMES A WEEK
     Route: 048
  2. CYMBALTA [Concomitant]

REACTIONS (3)
  - DRUG PRESCRIBING ERROR [None]
  - INTENTIONAL DRUG MISUSE [None]
  - IRRITABLE BOWEL SYNDROME [None]
